FAERS Safety Report 7658872-3 (Version None)
Quarter: 2011Q3

REPORT INFORMATION
  Report Type: 
  Country: None (occurrence: None)
  Receive Date: 20110804
  Receipt Date: 20110804
  Transmission Date: 20111222
  Serious: Yes (Life-Threatening, Hospitalization)
  Sender: FDA-Public Use
  Company Number: None

PATIENT
  Age: 40 Year
  Sex: Female
  Weight: 35.3806 kg

DRUGS (1)
  1. LEVAQUIN [Suspect]
     Dosage: SHOT
     Dates: start: 20060828

REACTIONS (1)
  - CONVULSION [None]
